FAERS Safety Report 16829011 (Version 2)
Quarter: 2019Q3

REPORT INFORMATION
  Report Type: Report from Study
  Country: CA (occurrence: CA)
  Receive Date: 20190919
  Receipt Date: 20190919
  Transmission Date: 20191005
  Serious: Yes (Other)
  Sender: FDA-Public Use
  Company Number: CA-EISAI MEDICAL RESEARCH-EC-2019-052821

PATIENT
  Age: 82 Year
  Sex: Female

DRUGS (14)
  1. LENVIMA [Suspect]
     Active Substance: LENVATINIB
     Route: 048
     Dates: start: 20190216, end: 20190813
  2. NITRO-DUR [Concomitant]
     Active Substance: NITROGLYCERIN
  3. ASA [Concomitant]
     Active Substance: ASPIRIN
  4. LENVIMA [Suspect]
     Active Substance: LENVATINIB
     Indication: THYROID CANCER
     Route: 048
     Dates: start: 20181219
  5. CRESTOR [Concomitant]
     Active Substance: ROSUVASTATIN CALCIUM
  6. PANTOLOC [Concomitant]
     Active Substance: PANTOPRAZOLE SODIUM
  7. CALCIUM [Concomitant]
     Active Substance: CALCIUM
  8. DILTIAZEM. [Concomitant]
     Active Substance: DILTIAZEM
  9. SYNTHROID [Concomitant]
     Active Substance: LEVOTHYROXINE SODIUM
  10. NITROSPRAY [Concomitant]
     Active Substance: NITROGLYCERIN
  11. LENVIMA [Suspect]
     Active Substance: LENVATINIB
     Route: 048
     Dates: end: 20190215
  12. KEPPRA [Concomitant]
     Active Substance: LEVETIRACETAM
  13. INSULIN [Concomitant]
     Active Substance: INSULIN NOS
  14. PRODIUM [Concomitant]

REACTIONS (4)
  - Muscular weakness [Unknown]
  - Muscle injury [Unknown]
  - Myocardial infarction [Unknown]
  - Myalgia [Not Recovered/Not Resolved]

NARRATIVE: CASE EVENT DATE: 2019
